FAERS Safety Report 13144024 (Version 1)
Quarter: 2017Q1

REPORT INFORMATION
  Report Type: Spontaneous
  Country: US (occurrence: US)
  Receive Date: 20170124
  Receipt Date: 20170124
  Transmission Date: 20170428
  Serious: Yes (Disabling)
  Sender: FDA-Public Use
  Company Number: None

PATIENT
  Age: 46 Year
  Sex: Female
  Weight: 56.7 kg

DRUGS (11)
  1. VITAMIN C SUPPLEMENT [Concomitant]
  2. VITAMIN D [Concomitant]
     Active Substance: CHOLECALCIFEROL
  3. MELATONIN [Concomitant]
     Active Substance: MELATONIN
  4. NAPROXEN. [Concomitant]
     Active Substance: NAPROXEN
  5. WOMEN^S VITAMINS [Concomitant]
  6. ZYRTEC OR CLARITIN [Concomitant]
  7. IBUPROFEN. [Concomitant]
     Active Substance: IBUPROFEN
  8. PROZAC [Concomitant]
     Active Substance: FLUOXETINE HYDROCHLORIDE
  9. FLONASE [Concomitant]
     Active Substance: FLUTICASONE PROPIONATE
  10. ACETAMINOPHEN. [Concomitant]
     Active Substance: ACETAMINOPHEN
  11. MIRENA [Suspect]
     Active Substance: LEVONORGESTREL

REACTIONS (3)
  - Unevaluable event [None]
  - Abdominal pain [None]
  - Impaired work ability [None]

NARRATIVE: CASE EVENT DATE: 20161107
